FAERS Safety Report 9051903 (Version 1)
Quarter: 2013Q1

REPORT INFORMATION
  Report Type: Spontaneous
  Country: US (occurrence: None)
  Receive Date: 20130130
  Receipt Date: 20130130
  Transmission Date: 20140127
  Serious: Yes (Hospitalization)
  Sender: FDA-Public Use
  Company Number: None

PATIENT
  Age: 18 Year
  Sex: Male
  Weight: 79.38 kg

DRUGS (1)
  1. LEVOFLOXACIN [Suspect]
     Indication: PNEUMONIA
     Dosage: 1 TABLET 1 A DAY PO?1 DOSE
     Route: 048
     Dates: start: 20130111, end: 20130111

REACTIONS (5)
  - Lip blister [None]
  - Hypersensitivity [None]
  - Dehydration [None]
  - Mouth injury [None]
  - Mucosal inflammation [None]
